FAERS Safety Report 6939040-7 (Version None)
Quarter: 2010Q3

REPORT INFORMATION
  Report Type: 
  Country: None (occurrence: None)
  Receive Date: 20100824
  Receipt Date: 20100816
  Transmission Date: 20110219
  Serious: Yes (Other)
  Sender: FDA-Public Use
  Company Number: US-JNJCH-2010018948

PATIENT

DRUGS (1)
  1. NEOSPORIN LT LIP TREATMENT [Suspect]
     Indication: LIP DISORDER
     Dosage: TEXT:UNSPECIFIED
     Route: 061

REACTIONS (3)
  - LIP BLISTER [None]
  - LIP DRY [None]
  - LIP SWELLING [None]
